FAERS Safety Report 10735358 (Version 1)
Quarter: 2015Q1

REPORT INFORMATION
  Report Type: Spontaneous
  Country: US (occurrence: US)
  Receive Date: 20150125
  Receipt Date: 20150125
  Transmission Date: 20150721
  Serious: Yes (Life-Threatening, Hospitalization)
  Sender: FDA-Public Use
  Company Number: US-JNJFOC-20150111752

PATIENT
  Age: 30 Year
  Sex: Female

DRUGS (3)
  1. APAP [Suspect]
     Active Substance: ACETAMINOPHEN
     Indication: SUICIDE ATTEMPT
     Route: 048
     Dates: start: 200611
  2. APAP [Suspect]
     Active Substance: ACETAMINOPHEN
     Route: 048
  3. TETRAHYDROCANNABINOL [Concomitant]
     Active Substance: DRONABINOL
     Indication: PRODUCT USED FOR UNKNOWN INDICATION
     Route: 065

REACTIONS (3)
  - Aggression [Unknown]
  - Unresponsive to stimuli [Unknown]
  - Intentional overdose [Unknown]

NARRATIVE: CASE EVENT DATE: 200611
